FAERS Safety Report 25383086 (Version 1)
Quarter: 2025Q2

REPORT INFORMATION
  Report Type: Report from Study
  Country: GB (occurrence: GB)
  Receive Date: 20250602
  Receipt Date: 20250602
  Transmission Date: 20250716
  Serious: Yes (Other)
  Sender: AMGEN
  Company Number: GB-BEH-2025207962

PATIENT
  Age: 81 Year
  Sex: Male
  Weight: 70 kg

DRUGS (22)
  1. AVACOPAN [Suspect]
     Active Substance: AVACOPAN
     Indication: Anti-neutrophil cytoplasmic antibody positive vasculitis
     Dosage: 20 MG, BID
     Route: 048
     Dates: start: 20231205, end: 20240206
  2. AVACOPAN [Suspect]
     Active Substance: AVACOPAN
     Dosage: 30 MG, BID
     Route: 048
     Dates: start: 20230920, end: 20231027
  3. AVACOPAN [Suspect]
     Active Substance: AVACOPAN
     Dosage: 20 MG, BID
     Route: 048
     Dates: start: 20231028, end: 20231030
  4. AVACOPAN [Suspect]
     Active Substance: AVACOPAN
     Dosage: 30 MG, BID
     Route: 048
     Dates: start: 20240207
  5. GAMUNEX [Concomitant]
     Active Substance: HUMAN IMMUNOGLOBULIN G
     Indication: Anti-neutrophil cytoplasmic antibody positive vasculitis
     Route: 065
     Dates: start: 20220704
  6. GAMUNEX [Concomitant]
     Active Substance: HUMAN IMMUNOGLOBULIN G
     Dosage: 40 G, OD
     Route: 042
     Dates: start: 20240409, end: 20240411
  7. PREDNISOLONE [Concomitant]
     Active Substance: PREDNISOLONE
     Indication: Anti-neutrophil cytoplasmic antibody positive vasculitis
     Dosage: 15 MG, OD
     Route: 048
     Dates: start: 20231105, end: 20240206
  8. PREDNISOLONE [Concomitant]
     Active Substance: PREDNISOLONE
     Dosage: 60 MG, OD
     Route: 065
     Dates: start: 20230917, end: 20230924
  9. PREDNISOLONE [Concomitant]
     Active Substance: PREDNISOLONE
     Dosage: 30 MG, OD
     Route: 065
     Dates: start: 20230925, end: 20231013
  10. PREDNISOLONE [Concomitant]
     Active Substance: PREDNISOLONE
     Dosage: 25 MG, OD
     Route: 065
     Dates: start: 20231020, end: 20231026
  11. PREDNISOLONE [Concomitant]
     Active Substance: PREDNISOLONE
     Dosage: 15 MG, OD
     Route: 065
     Dates: start: 20231027, end: 202311
  12. PREDNISOLONE [Concomitant]
     Active Substance: PREDNISOLONE
     Dosage: 12.5 MG, OD
     Route: 065
     Dates: start: 20240207, end: 20240312
  13. PREDNISOLONE [Concomitant]
     Active Substance: PREDNISOLONE
     Dosage: 10 MG, OD
     Route: 065
     Dates: start: 20240313, end: 20240326
  14. PREDNISOLONE [Concomitant]
     Active Substance: PREDNISOLONE
     Dosage: 9 MG, OD
     Route: 065
     Dates: start: 20240327, end: 20240409
  15. PREDNISOLONE [Concomitant]
     Active Substance: PREDNISOLONE
     Dosage: 8 MG, OD
     Route: 065
     Dates: start: 20240410, end: 20240423
  16. PREDNISOLONE [Concomitant]
     Active Substance: PREDNISOLONE
     Dosage: 7 MG, OD
     Route: 065
     Dates: start: 20240424, end: 20240507
  17. PREDNISOLONE [Concomitant]
     Active Substance: PREDNISOLONE
     Dosage: 6 MG, OD
     Route: 065
     Dates: start: 20240508, end: 20240521
  18. PREDNISOLONE [Concomitant]
     Active Substance: PREDNISOLONE
     Dosage: 5 MG, OD
     Route: 065
     Dates: start: 20240522, end: 20240709
  19. PREDNISOLONE [Concomitant]
     Active Substance: PREDNISOLONE
     Dosage: 4 MG, OD
     Route: 065
     Dates: start: 20240710, end: 20241008
  20. PREDNISOLONE [Concomitant]
     Active Substance: PREDNISOLONE
     Dosage: 10 MG, OD
     Route: 065
     Dates: start: 20241009, end: 20241025
  21. PREDNISOLONE [Concomitant]
     Active Substance: PREDNISOLONE
     Dosage: 5 MG, OD
     Route: 065
     Dates: start: 20241026
  22. METHYLPREDNISOLONE [Concomitant]
     Active Substance: METHYLPREDNISOLONE
     Indication: Anti-neutrophil cytoplasmic antibody positive vasculitis
     Dosage: 0.5 G, OD, COMPLETION OF PLANNED COURSE
     Route: 042
     Dates: start: 20230914, end: 20230916

REACTIONS (3)
  - Aortic stenosis [Recovering/Resolving]
  - Myopathy [Recovering/Resolving]
  - Wound infection [Recovered/Resolved]

NARRATIVE: CASE EVENT DATE: 20241001
